FAERS Safety Report 11496392 (Version 1)
Quarter: 2015Q3

REPORT INFORMATION
  Report Type: Spontaneous
  Country: PA (occurrence: PA)
  Receive Date: 20150911
  Receipt Date: 20150911
  Transmission Date: 20151125
  Serious: Yes (Other)
  Sender: FDA-Public Use
  Company Number: PA-SA-2015SA134774

PATIENT
  Age: 57 Year
  Sex: Female

DRUGS (2)
  1. COAPROVEL [Suspect]
     Active Substance: HYDROCHLOROTHIAZIDE\IRBESARTAN
     Indication: HYPERTENSION
     Dosage: DOSE: 12.5 MG+150 MG ?DAILY DOSE: 12.5 MG+150 MG
     Route: 048
     Dates: start: 2013, end: 201508
  2. COAPROVEL [Suspect]
     Active Substance: HYDROCHLOROTHIAZIDE\IRBESARTAN
     Indication: HYPERTENSION
     Dosage: DOSE: 12.5 MG+150 MG ?DAILY DOSE: 25MG+300MG
     Route: 048
     Dates: start: 201508, end: 201508

REACTIONS (4)
  - Conjunctival haemorrhage [Unknown]
  - Pollakiuria [Recovered/Resolved]
  - Blood pressure increased [Unknown]
  - Tachycardia [Recovered/Resolved]

NARRATIVE: CASE EVENT DATE: 201508
